FAERS Safety Report 4551264-5 (Version None)
Quarter: 2005Q1

REPORT INFORMATION
  Report Type: 
  Country: None (occurrence: None)
  Receive Date: 20050106
  Receipt Date: 20041221
  Transmission Date: 20050727
  Serious: Yes (Hospitalization)
  Sender: FDA-Public Use
  Company Number: DSA_25527_2004

PATIENT
  Age: 95 Year
  Sex: Female

DRUGS (2)
  1. LORAZEPAM [Suspect]
     Dosage: 1 MG Q DAY PO
     Route: 048
  2. TENSTATEN [Suspect]
     Dosage: 50 MG Q DAY PO
     Route: 048

REACTIONS (3)
  - BLOOD OSMOLARITY DECREASED [None]
  - DEHYDRATION [None]
  - HYPONATRAEMIA [None]
